FAERS Safety Report 8234377-6 (Version None)
Quarter: 2012Q1

REPORT INFORMATION
  Report Type: 
  Country: None (occurrence: None)
  Receive Date: 20120326
  Receipt Date: 20120319
  Transmission Date: 20120608
  Serious: Yes (Hospitalization)
  Sender: FDA-Public Use
  Company Number: US-BAYER-2011-040533

PATIENT
  Age: 28 Year
  Sex: Female
  Weight: 73.923 kg

DRUGS (8)
  1. DOXYCYCLINE [Concomitant]
     Indication: ACNE
     Route: 048
  2. YAZ [Suspect]
     Indication: CONTRACEPTION
     Dosage: UNK
  3. YASMIN [Suspect]
     Indication: CONTRACEPTION
     Dosage: UNK
     Dates: start: 20070101, end: 20090101
  4. PRILOSEC [Concomitant]
     Route: 048
  5. IBUPROFEN [Concomitant]
     Indication: COSTOCHONDRITIS
  6. EFFEXOR [Concomitant]
     Route: 048
  7. DROSPIRENONE AND ETHINYL ESTRADIOL [Suspect]
     Indication: CONTRACEPTION
  8. PERCOCET [Concomitant]
     Indication: PAIN
     Dosage: UNK UNK, PRN
     Route: 048
     Dates: start: 20010101

REACTIONS (9)
  - PAIN [None]
  - ABDOMINAL PAIN [None]
  - EMOTIONAL DISTRESS [None]
  - DISCOMFORT [None]
  - BILE DUCT STONE [None]
  - ANXIETY [None]
  - CHOLECYSTITIS ACUTE [None]
  - GENERAL PHYSICAL HEALTH DETERIORATION [None]
  - CHOLELITHIASIS [None]
